FAERS Safety Report 13701835 (Version 1)
Quarter: 2017Q2

REPORT INFORMATION
  Report Type: Spontaneous
  Country: FR (occurrence: FR)
  Receive Date: 20170629
  Receipt Date: 20170629
  Transmission Date: 20170830
  Serious: Yes (Other)
  Sender: FDA-Public Use
  Company Number: FR-BAYER-2017-123475

PATIENT
  Age: 41 Year
  Sex: Female

DRUGS (1)
  1. MIRENA [Suspect]
     Active Substance: LEVONORGESTREL
     Indication: CONTRACEPTION
     Dosage: 20 MCG/24HR, CONT
     Route: 015
     Dates: start: 20111003, end: 20170601

REACTIONS (10)
  - Depressed mood [Unknown]
  - Arthralgia [Unknown]
  - Muscular weakness [Unknown]
  - Libido decreased [Unknown]
  - Acne [Unknown]
  - Abdominal distension [Unknown]
  - Fatigue [Unknown]
  - Affective disorder [Unknown]
  - Anxiety [Unknown]
  - Breast pain [Unknown]

NARRATIVE: CASE EVENT DATE: 2014
